FAERS Safety Report 4744418-6 (Version None)
Quarter: 2005Q3

REPORT INFORMATION
  Report Type: 
  Country: None (occurrence: None)
  Receive Date: 20050811
  Receipt Date: 20050811
  Transmission Date: 20060218
  Serious: Yes (Hospitalization)
  Sender: FDA-Public Use
  Company Number: None

PATIENT
  Sex: Female
  Weight: 125.4 kg

DRUGS (7)
  1. DOCETAXEL [Suspect]
     Indication: BREAST CANCER
     Dosage: 60MG/M2  EVERY 3 WE  INTRAVENOUS
     Route: 042
     Dates: start: 20050505, end: 20050616
  2. HERCEPTIN [Suspect]
     Indication: BREAST CANCER
     Dosage: 6MG/KG  EVERY 3 WE  INTRAVENOUS
     Route: 042
     Dates: start: 20050505, end: 20050616
  3. HYDROCHLOROTHIAZIDE [Concomitant]
  4. PAXIL [Concomitant]
  5. DEPAKOTE [Concomitant]
  6. DECADRON [Concomitant]
  7. TAXOTERE [Concomitant]

REACTIONS (3)
  - ASTHENIA [None]
  - PALLOR [None]
  - SEPSIS [None]
